FAERS Safety Report 14565556 (Version 2)
Quarter: 2018Q1

REPORT INFORMATION
  Report Type: Other
  Country: IE (occurrence: IE)
  Receive Date: 20180223
  Receipt Date: 20180312
  Transmission Date: 20180509
  Serious: Yes (Other)
  Sender: FDA-Public Use
  Company Number: IE-TAKEDA-2018TEU000944

PATIENT
  Age: 69 Year
  Sex: Male

DRUGS (5)
  1. ACERYCAL [Concomitant]
     Indication: HYPERTENSION
     Dosage: UNK
  2. ROSUVASTATIN KRKA [Concomitant]
     Indication: HYPERCHOLESTEROLAEMIA
     Dosage: UNK
     Route: 048
     Dates: start: 20140707, end: 20171103
  3. SERETIDE [Concomitant]
     Active Substance: FLUTICASONE PROPIONATE\SALMETEROL XINAFOATE
     Indication: ASTHMA
     Dosage: UNK UNK, QD
     Route: 048
     Dates: start: 20141107
  4. SALAMOL                            /00139501/ [Concomitant]
     Indication: ASTHMA
     Dosage: UNK
     Dates: start: 20141204, end: 20171103
  5. LANSOPRAZOLE. [Suspect]
     Active Substance: LANSOPRAZOLE
     Indication: GASTROOESOPHAGEAL REFLUX DISEASE
     Dosage: UNK
     Route: 048
     Dates: start: 20171019, end: 20171103

REACTIONS (2)
  - Visual impairment [Unknown]
  - Dizziness [Unknown]

NARRATIVE: CASE EVENT DATE: 20171026
